FAERS Safety Report 8284952 (Version 8)
Quarter: 2013Q4

REPORT INFORMATION
  Report Type: Report from Study
  Country: CA (occurrence: CA)
  Receive Date: 20111212
  Receipt Date: 20131106
  Transmission Date: 20140711
  Serious: No
  Sender: FDA-Public Use
  Company Number: PHHY2011CA63583

PATIENT
  Age: 29 Year
  Sex: Female

DRUGS (1)
  1. GILENYA [Suspect]
     Indication: RELAPSING-REMITTING MULTIPLE SCLEROSIS
     Dosage: 0.5 MG, QD
     Route: 048
     Dates: start: 20110711

REACTIONS (11)
  - Eye oedema [Unknown]
  - Feeling hot [Unknown]
  - Feeling cold [Unknown]
  - Abdominal pain [Unknown]
  - Blood pressure decreased [Unknown]
  - Nausea [Not Recovered/Not Resolved]
  - Fatigue [Unknown]
  - Somnolence [Unknown]
  - Flushing [Unknown]
  - Headache [Not Recovered/Not Resolved]
  - Heart rate decreased [Recovered/Resolved]
